FAERS Safety Report 6145692-4 (Version None)
Quarter: 2009Q2

REPORT INFORMATION
  Report Type: 
  Country: None (occurrence: None)
  Receive Date: 20090407
  Receipt Date: 20090403
  Transmission Date: 20091009
  Serious: Yes (Disabling, Other)
  Sender: FDA-Public Use
  Company Number: CH-BRISTOL-MYERS SQUIBB COMPANY-14494868

PATIENT
  Age: 42 Year
  Sex: Female

DRUGS (5)
  1. REYATAZ [Suspect]
     Indication: HIV INFECTION
     Route: 048
     Dates: start: 20030827
  2. NORVIR [Suspect]
     Route: 048
     Dates: start: 20030801, end: 20080701
  3. ASPIRIN [Suspect]
  4. DIDANOSINE [Concomitant]
     Dates: start: 20030801, end: 20051001
  5. KIVEXA [Concomitant]
     Dosage: JUL-2007.
     Dates: start: 20070701

REACTIONS (2)
  - LIPOHYPERTROPHY [None]
  - WEIGHT INCREASED [None]
